FAERS Safety Report 5698233-X (Version None)
Quarter: 2008Q2

REPORT INFORMATION
  Report Type: 
  Country: None (occurrence: None)
  Receive Date: 20080408
  Receipt Date: 20080327
  Transmission Date: 20081010
  Serious: Yes (Other)
  Sender: FDA-Public Use
  Company Number: CA-PFIZER INC-2008021137

PATIENT
  Sex: Male
  Weight: 79.8 kg

DRUGS (1)
  1. CHAMPIX [Suspect]
     Indication: SMOKING CESSATION THERAPY
     Route: 048
     Dates: start: 20080131, end: 20080229

REACTIONS (8)
  - DEPRESSION [None]
  - IMPATIENCE [None]
  - MYALGIA [None]
  - NAUSEA [None]
  - NIGHTMARE [None]
  - SUICIDAL IDEATION [None]
  - ULCER HAEMORRHAGE [None]
  - VOMITING [None]
